FAERS Safety Report 9344269 (Version 3)
Quarter: 2013Q3

REPORT INFORMATION
  Report Type: Spontaneous
  Country: US (occurrence: US)
  Receive Date: 20130612
  Receipt Date: 20130719
  Transmission Date: 20140515
  Serious: Yes (Life-Threatening, Hospitalization, Other)
  Sender: FDA-Public Use
  Company Number: US-009507513-1306USA004679

PATIENT
  Age: 47 Year
  Sex: Female

DRUGS (3)
  1. SAPHRIS [Suspect]
     Indication: BIPOLAR DISORDER
     Dosage: 10 MG, BID
     Route: 060
     Dates: start: 201205, end: 20130421
  2. SAPHRIS [Suspect]
     Dosage: 200 MG, ONCE, 20 PILLS
     Dates: start: 20130421, end: 20130421
  3. TOPAMAX [Concomitant]
     Indication: MIGRAINE
     Dosage: 200 MG, UNK
     Route: 048

REACTIONS (5)
  - Suicide attempt [Recovered/Resolved]
  - Intentional overdose [Unknown]
  - Tachycardia [Recovered/Resolved]
  - Hypotension [Recovered/Resolved]
  - Electrocardiogram change [Recovered/Resolved]
